FAERS Safety Report 8409178-6 (Version None)
Quarter: 2012Q2

REPORT INFORMATION
  Report Type: 
  Country: None (occurrence: None)
  Receive Date: 20120604
  Receipt Date: 20120521
  Transmission Date: 20120825
  Serious: Yes (Death, Hospitalization)
  Sender: FDA-Public Use
  Company Number: US-BAXTER-2012BAX005992

PATIENT
  Sex: Female

DRUGS (1)
  1. DIANEAL PD-2 W/ DEXTROSE 1.5% [Suspect]
     Indication: PERITONEAL DIALYSIS
     Route: 033

REACTIONS (4)
  - DEHYDRATION [None]
  - HYPOTENSION [None]
  - SEPSIS [None]
  - RENAL CANCER METASTATIC [None]
